FAERS Safety Report 11899576 (Version 1)
Quarter: 2016Q1

REPORT INFORMATION
  Report Type: Spontaneous
  Country: US (occurrence: US)
  Receive Date: 20160108
  Receipt Date: 20160108
  Transmission Date: 20160526
  Serious: No
  Sender: FDA-Public Use
  Company Number: US-ABBVIE-15P-163-1432793-00

PATIENT
  Age: 67 Year
  Sex: Male

DRUGS (1)
  1. VIEKIRA PAK [Suspect]
     Active Substance: DASABUVIR\OMBITASVIR\PARITAPREVIR\RITONAVIR
     Indication: HEPATITIS C
     Route: 048

REACTIONS (6)
  - Dysphagia [Unknown]
  - Dyspnoea [Unknown]
  - Wheezing [Unknown]
  - Swollen tongue [Unknown]
  - Face oedema [Unknown]
  - Lip swelling [Unknown]

NARRATIVE: CASE EVENT DATE: 2015
